FAERS Safety Report 4930706-7 (Version None)
Quarter: 2006Q1

REPORT INFORMATION
  Report Type: 
  Country: None (occurrence: None)
  Receive Date: 20060302
  Receipt Date: 20060222
  Transmission Date: 20060701
  Serious: Yes (Hospitalization)
  Sender: FDA-Public Use
  Company Number: CA-BRISTOL-MYERS SQUIBB COMPANY-13292446

PATIENT
  Age: 93 Year
  Sex: Female

DRUGS (1)
  1. DESYREL [Suspect]
     Dates: start: 20050601

REACTIONS (2)
  - EOSINOPHIL COUNT INCREASED [None]
  - RASH [None]
